FAERS Safety Report 22631466 (Version 1)
Quarter: 2023Q2

REPORT INFORMATION
  Report Type: Report from Study
  Country: CA (occurrence: CA)
  Receive Date: 20230623
  Receipt Date: 20230623
  Transmission Date: 20230721
  Serious: Yes (Other)
  Sender: FDA-Public Use
  Company Number: CA-002147023-PHHY2016CA110845

PATIENT
  Age: 56 Year
  Sex: Female

DRUGS (6)
  1. AFINITOR [Suspect]
     Active Substance: EVEROLIMUS
     Indication: Breast cancer
     Dosage: 10 MG, QD
     Route: 048
     Dates: start: 20160707, end: 20170127
  2. AFINITOR [Suspect]
     Active Substance: EVEROLIMUS
     Dosage: 5 MG,QD
     Route: 048
     Dates: start: 201703
  3. AFINITOR [Suspect]
     Active Substance: EVEROLIMUS
     Dosage: 5 MG
     Route: 065
     Dates: start: 20210115, end: 2022
  4. EXEMESTANE [Concomitant]
     Active Substance: EXEMESTANE
     Indication: Product used for unknown indication
     Dosage: UNK
     Route: 065
  5. XGEVA [Concomitant]
     Active Substance: DENOSUMAB
     Indication: Product used for unknown indication
     Dosage: UNK
     Route: 065
  6. CALCIUM [Concomitant]
     Active Substance: CALCIUM
     Indication: Product used for unknown indication
     Dosage: UNK UNK, TID
     Route: 065

REACTIONS (28)
  - Hepatic cancer [Unknown]
  - Lung neoplasm malignant [Unknown]
  - Bone cancer [Unknown]
  - Second primary malignancy [Unknown]
  - Recurrent cancer [Recovering/Resolving]
  - Metastasis [Recovering/Resolving]
  - Pneumonia [Unknown]
  - Malignant neoplasm progression [Unknown]
  - Breast cancer [Unknown]
  - Pneumonitis [Unknown]
  - Myositis [Unknown]
  - Memory impairment [Unknown]
  - Toxicity to various agents [Unknown]
  - Migraine [Unknown]
  - Gastrooesophageal reflux disease [Unknown]
  - Hot flush [Unknown]
  - Movement disorder [Unknown]
  - Pain [Unknown]
  - Dysgeusia [Unknown]
  - Tongue disorder [Unknown]
  - Stomatitis [Recovered/Resolved]
  - Dysphagia [Unknown]
  - Decreased appetite [Unknown]
  - Weight decreased [Unknown]
  - Joint swelling [Unknown]
  - Peripheral swelling [Unknown]
  - Glossodynia [Recovered/Resolved]
  - Dry skin [Unknown]

NARRATIVE: CASE EVENT DATE: 20160707
